FAERS Safety Report 5840543-7 (Version None)
Quarter: 2008Q3

REPORT INFORMATION
  Report Type: 
  Country: None (occurrence: None)
  Receive Date: 20080807
  Receipt Date: 20080807
  Transmission Date: 20090109
  Serious: No
  Sender: FDA-Public Use
  Company Number: None

PATIENT
  Age: 36 Year
  Sex: Female
  Weight: 71.6683 kg

DRUGS (2)
  1. CIPROFLOXACIN 500MG RANBAXY, BAYER [Suspect]
     Indication: BREAST INFLAMMATION
     Dosage: 500MG 2X DAILY PO
     Route: 048
     Dates: start: 20080725, end: 20080730
  2. CIPROFLOXACIN 500MG RANBAXY, BAYER [Suspect]
     Indication: NEOPLASM
     Dosage: 500MG 2X DAILY PO
     Route: 048
     Dates: start: 20080725, end: 20080730

REACTIONS (8)
  - DRUG TOXICITY [None]
  - HEADACHE [None]
  - MUSCLE SPASMS [None]
  - MUSCULAR WEAKNESS [None]
  - MUSCULOSKELETAL PAIN [None]
  - PAIN [None]
  - PAIN IN EXTREMITY [None]
  - TREMOR [None]
